FAERS Safety Report 9423702 (Version 1)
Quarter: 2013Q3

REPORT INFORMATION
  Report Type: Spontaneous
  Country: TR (occurrence: TR)
  Receive Date: 20130727
  Receipt Date: 20130727
  Transmission Date: 20140515
  Serious: Yes (Life-Threatening, Hospitalization)
  Sender: FDA-Public Use
  Company Number: PHHY2013TR078641

PATIENT
  Age: 29 Year
  Sex: Female

DRUGS (4)
  1. QUETIAPINE [Suspect]
     Dosage: 9 G, UNK
  2. ESCITALOPRAM [Suspect]
     Dosage: 280 MG, UNK
  3. AMOXICILLIN [Suspect]
     Dosage: 5 G, UNK
  4. IBUPROFEN [Suspect]
     Dosage: 4 G, UNK

REACTIONS (7)
  - Suicide attempt [Recovering/Resolving]
  - Disorientation [Recovering/Resolving]
  - Coma [Recovering/Resolving]
  - Sinus tachycardia [Recovering/Resolving]
  - Depressed level of consciousness [Recovering/Resolving]
  - Hypotension [Recovering/Resolving]
  - Intentional overdose [Unknown]
